FAERS Safety Report 11327860 (Version 1)
Quarter: 2015Q3

REPORT INFORMATION
  Report Type: Spontaneous
  Country: JP (occurrence: JP)
  Receive Date: 20150731
  Receipt Date: 20150731
  Transmission Date: 20151125
  Serious: Yes (Other)
  Sender: FDA-Public Use
  Company Number: PHHY2015JP089964

PATIENT
  Age: 6 Year
  Sex: Male

DRUGS (4)
  1. CYCLOPHOSPHAMIDE. [Suspect]
     Active Substance: CYCLOPHOSPHAMIDE
     Indication: B-CELL LYMPHOMA
     Dosage: 600 MG/M2, UNK
     Route: 065
  2. VINCRISTINE [Suspect]
     Active Substance: VINCRISTINE
     Indication: B-CELL LYMPHOMA
     Dosage: 3.0 MG/M2, UNK
     Route: 065
  3. PREDNISOLONE. [Suspect]
     Active Substance: PREDNISOLONE
     Indication: B-CELL LYMPHOMA
     Dosage: 480 MG/M2, UNK
     Route: 065
  4. THP-ADRIAMYCIN [Suspect]
     Active Substance: PIRARUBICIN
     Indication: B-CELL LYMPHOMA
     Dosage: 50 MG/M2, UNK
     Route: 065

REACTIONS (4)
  - Hypertension [Unknown]
  - Tumour lysis syndrome [Unknown]
  - Blindness transient [Unknown]
  - Posterior reversible encephalopathy syndrome [Unknown]
